FAERS Safety Report 4555276-7 (Version None)
Quarter: 2005Q1

REPORT INFORMATION
  Report Type: 
  Country: None (occurrence: None)
  Receive Date: 20041227
  Receipt Date: 20040802
  Transmission Date: 20050727
  Serious: No
  Sender: FDA-Public Use
  Company Number: US086478

PATIENT
  Age: 53 Year
  Sex: Female

DRUGS (4)
  1. ARANESP [Suspect]
     Indication: ANAEMIA OF MALIGNANT DISEASE
     Dosage: 200 MCG, 1 IN 2 WEEKS
     Dates: start: 20040719, end: 20040726
  2. NEUPOGEN [Concomitant]
  3. CISPLATIN [Concomitant]
  4. ETOPOSIDE [Concomitant]

REACTIONS (1)
  - HAEMOGLOBIN DECREASED [None]
